FAERS Safety Report 7312314-6 (Version None)
Quarter: 2011Q1

REPORT INFORMATION
  Report Type: 
  Country: None (occurrence: None)
  Receive Date: 20110224
  Receipt Date: 20110220
  Transmission Date: 20110831
  Serious: Yes (Hospitalization)
  Sender: FDA-Public Use
  Company Number: B0701939A

PATIENT
  Sex: Female

DRUGS (4)
  1. SILDENAFIL [Suspect]
     Indication: PULMONARY ARTERIAL HYPERTENSION
     Route: 065
  2. VOLIBRIS [Suspect]
     Indication: PULMONARY ARTERIAL HYPERTENSION
     Dosage: 5MG PER DAY
     Route: 048
     Dates: end: 20110218
  3. DOBUTAMINE HCL [Concomitant]
     Route: 065
     Dates: end: 20110218
  4. FLOLAN [Suspect]
     Indication: PULMONARY ARTERIAL HYPERTENSION
     Route: 065
     Dates: end: 20110218

REACTIONS (2)
  - HEPATIC ENZYME INCREASED [None]
  - INFECTION [None]
